FAERS Safety Report 6677403-8 (Version None)
Quarter: 2010Q2

REPORT INFORMATION
  Report Type: 
  Country: None (occurrence: None)
  Receive Date: 20100412
  Receipt Date: 20100407
  Transmission Date: 20101027
  Serious: Yes (Death, Other)
  Sender: FDA-Public Use
  Company Number: JP-ELI_LILLY_AND_COMPANY-JP200908005856

PATIENT
  Sex: Male
  Weight: 62 kg

DRUGS (7)
  1. GEMZAR [Suspect]
     Indication: NON-SMALL CELL LUNG CANCER STAGE IIIB
     Dosage: 1763 MG, OTHER
     Route: 042
     Dates: start: 20090422, end: 20090519
  2. GEMZAR [Suspect]
     Dosage: 1734 MG, OTHER
     Route: 042
     Dates: start: 20090520, end: 20090618
  3. ALIMTA [Suspect]
     Indication: NON-SMALL CELL LUNG CANCER STAGE IIIB
     Dosage: 852 MG, OTHER
     Route: 042
     Dates: start: 20090804, end: 20090804
  4. CISPLATIN [Concomitant]
     Indication: NON-SMALL CELL LUNG CANCER STAGE IIIB
     Dosage: 140 MG, OTHER
     Route: 042
     Dates: start: 20090422, end: 20090519
  5. PARAPLATIN [Concomitant]
     Indication: NON-SMALL CELL LUNG CANCER STAGE IIIB
     Dosage: 400 MG, OTHER
     Route: 042
     Dates: start: 20090520, end: 20090618
  6. FOLIC ACID [Concomitant]
     Dosage: 1 G, DAILY (1/D)
     Route: 048
     Dates: start: 20090724, end: 20090819
  7. VITAMIN B-12 [Concomitant]
     Dosage: 1 MG, OTHER
     Route: 030
     Dates: start: 20090724

REACTIONS (2)
  - INTERSTITIAL LUNG DISEASE [None]
  - MALIGNANT NEOPLASM PROGRESSION [None]
